FAERS Safety Report 16411341 (Version 1)
Quarter: 2019Q2

REPORT INFORMATION
  Report Type: Spontaneous
  Country: US (occurrence: US)
  Receive Date: 20190610
  Receipt Date: 20190610
  Transmission Date: 20190711
  Serious: No
  Sender: FDA-Public Use
  Company Number: US-PFIZER INC-2018110479

PATIENT
  Age: 63 Year
  Sex: Female
  Weight: 131 kg

DRUGS (1)
  1. METHOTREXATE SODIUM. [Suspect]
     Active Substance: METHOTREXATE SODIUM
     Indication: RHEUMATOID ARTHRITIS
     Dosage: 0.08 UG, WEEKLY

REACTIONS (3)
  - Impaired healing [Recovering/Resolving]
  - Underdose [Unknown]
  - Ulcer [Recovering/Resolving]
